FAERS Safety Report 6789904-2 (Version None)
Quarter: 2010Q2

REPORT INFORMATION
  Report Type: 
  Country: None (occurrence: None)
  Receive Date: 20100624
  Receipt Date: 20100614
  Transmission Date: 20101027
  Serious: Yes (Other)
  Sender: FDA-Public Use
  Company Number: CH-BAYER-201029018GPV

PATIENT
  Age: 45 Year
  Sex: Female

DRUGS (2)
  1. MIRENA [Suspect]
     Indication: DRUG USE FOR UNKNOWN INDICATION
     Route: 015
     Dates: end: 20090101
  2. MIRENA [Suspect]
     Route: 015
     Dates: start: 20090101

REACTIONS (2)
  - DEAFNESS [None]
  - INNER EAR INFLAMMATION [None]
